FAERS Safety Report 5831612-6 (Version None)
Quarter: 2008Q3

REPORT INFORMATION
  Report Type: 
  Country: None (occurrence: None)
  Receive Date: 20080801
  Receipt Date: 20080722
  Transmission Date: 20090109
  Serious: Yes (Hospitalization)
  Sender: FDA-Public Use
  Company Number: JP-PFIZER INC-2008063367

PATIENT
  Sex: Male
  Weight: 67 kg

DRUGS (7)
  1. SU-011,248 [Suspect]
     Indication: RENAL CANCER
     Route: 048
     Dates: start: 20060418, end: 20060501
  2. SU-011,248 [Suspect]
     Route: 048
     Dates: start: 20060509, end: 20060515
  3. SU-011,248 [Suspect]
     Route: 048
     Dates: start: 20060530, end: 20060626
  4. SU-011,248 [Suspect]
     Route: 048
     Dates: start: 20060711, end: 20060807
  5. SU-011,248 [Suspect]
     Route: 048
     Dates: start: 20060822, end: 20060918
  6. SU-011,248 [Suspect]
     Route: 048
     Dates: start: 20061003, end: 20061030
  7. LANSOPRAZOLE [Concomitant]
     Route: 048
     Dates: start: 20061017, end: 20061120

REACTIONS (2)
  - ATRIAL FIBRILLATION [None]
  - SICK SINUS SYNDROME [None]
